FAERS Safety Report 8311147-1 (Version None)
Quarter: 2012Q2

REPORT INFORMATION
  Report Type: 
  Country: None (occurrence: None)
  Receive Date: 20120425
  Receipt Date: 20110621
  Transmission Date: 20120825
  Serious: No
  Sender: FDA-Public Use
  Company Number: US-MYLANLABS-2011S1012584

PATIENT
  Age: 82 Year
  Sex: Female

DRUGS (5)
  1. LORAZEPAM [Suspect]
     Route: 048
     Dates: start: 20110501, end: 20110619
  2. LORAZEPAM [Suspect]
     Indication: DEPRESSION
     Route: 048
     Dates: start: 20110501, end: 20110619
  3. HYDROCHLOROTHIAZIDE [Suspect]
     Indication: BLOOD PRESSURE
     Route: 048
     Dates: start: 20100101, end: 20110601
  4. LORAZEPAM [Suspect]
     Indication: ANXIETY
     Route: 048
     Dates: start: 20110501, end: 20110619
  5. LORAZEPAM [Suspect]
     Route: 048
     Dates: start: 20110501, end: 20110619

REACTIONS (5)
  - VISION BLURRED [None]
  - FATIGUE [None]
  - BALANCE DISORDER [None]
  - DIZZINESS [None]
  - RESTLESSNESS [None]
